FAERS Safety Report 10890614 (Version 4)
Quarter: 2015Q3

REPORT INFORMATION
  Report Type: Report from Study
  Country: AU (occurrence: AU)
  Receive Date: 20150305
  Receipt Date: 20150730
  Transmission Date: 20151125
  Serious: Yes (Other)
  Sender: FDA-Public Use
  Company Number: AU-ROCHE-1548484

PATIENT
  Age: 52 Year
  Sex: Female
  Weight: 68 kg

DRUGS (9)
  1. KADCYLA [Suspect]
     Active Substance: ADO-TRASTUZUMAB EMTANSINE
     Route: 042
  2. HERCEPTIN [Suspect]
     Active Substance: TRASTUZUMAB
     Indication: BREAST CANCER METASTATIC
     Route: 065
  3. ABRAXANE [Concomitant]
     Active Substance: PACLITAXEL
  4. KADCYLA [Suspect]
     Active Substance: ADO-TRASTUZUMAB EMTANSINE
     Route: 042
     Dates: start: 20150304
  5. PARACETAMOL [Concomitant]
     Active Substance: ACETAMINOPHEN
     Indication: PAIN
     Dosage: STARTED SINCE YEARS
     Route: 048
  6. KADCYLA [Suspect]
     Active Substance: ADO-TRASTUZUMAB EMTANSINE
     Indication: BREAST CANCER METASTATIC
     Route: 042
     Dates: start: 201410
  7. DIAZEPAM. [Concomitant]
     Active Substance: DIAZEPAM
     Dosage: STARTED APPROXIMATELY SINCE 1 YEAR
     Route: 048
  8. VENLAFAXINE [Concomitant]
     Active Substance: VENLAFAXINE HYDROCHLORIDE
     Indication: ANXIETY
     Dosage: DAILY, STARTED SINCE YEARS
     Route: 048
  9. FENTANYL. [Concomitant]
     Active Substance: FENTANYL
     Indication: PAIN
     Dosage: ROUTE; TOP, STARTED SINCE YEARS
     Route: 065

REACTIONS (8)
  - Weight decreased [Unknown]
  - Arthralgia [Unknown]
  - Nausea [Unknown]
  - Neurotoxicity [Unknown]
  - Lethargy [Not Recovered/Not Resolved]
  - Fatigue [Not Recovered/Not Resolved]
  - Gastrointestinal wall thickening [Unknown]
  - Myalgia [Unknown]

NARRATIVE: CASE EVENT DATE: 201502
